FAERS Safety Report 5659459-4 (Version None)
Quarter: 2008Q1

REPORT INFORMATION
  Report Type: 
  Country: None (occurrence: None)
  Receive Date: 20080311
  Receipt Date: 20080303
  Transmission Date: 20080703
  Serious: Yes (Other)
  Sender: FDA-Public Use
  Company Number: PHHY2008JP02467

PATIENT
  Age: 28 Year
  Sex: Male

DRUGS (11)
  1. LUDIOMIL [Suspect]
     Indication: DEPRESSION
     Route: 048
  2. TOLEDOMIN [Concomitant]
  3. LENDORMIN [Concomitant]
  4. PEMOLINE [Concomitant]
  5. MYSLEE [Concomitant]
  6. WYPAX [Concomitant]
  7. LEXOTAN [Concomitant]
  8. DOGMATYL [Concomitant]
  9. ANAFRANIL [Concomitant]
  10. LORAMET [Concomitant]
  11. AMOXAN [Concomitant]

REACTIONS (2)
  - AMNESIA [None]
  - VISUAL FIELD DEFECT [None]
